FAERS Safety Report 5891000-3 (Version None)
Quarter: 2008Q3

REPORT INFORMATION
  Report Type: 
  Country: None (occurrence: None)
  Receive Date: 20080922
  Receipt Date: 20080910
  Transmission Date: 20090109
  Serious: Yes (Hospitalization)
  Sender: FDA-Public Use
  Company Number: B0536609A

PATIENT
  Age: 67 Year
  Sex: Male

DRUGS (5)
  1. FORTUMSET [Suspect]
     Indication: CHOLANGITIS
     Dosage: 3G PER DAY
     Route: 042
     Dates: start: 20080426, end: 20080510
  2. FLAGYL I.V. [Suspect]
     Indication: CHOLANGITIS
     Dosage: 3G PER DAY
     Route: 042
     Dates: start: 20080425, end: 20080510
  3. OLMETEC [Concomitant]
     Route: 065
  4. OMIX [Concomitant]
     Route: 065
  5. ROCEPHIN [Concomitant]
     Indication: DRUG USE FOR UNKNOWN INDICATION
     Dosage: 1G SINGLE DOSE
     Route: 065
     Dates: start: 20080424, end: 20080424

REACTIONS (3)
  - BILE DUCT STENOSIS [None]
  - HEPATITIS CHOLESTATIC [None]
  - PRURITUS [None]
